FAERS Safety Report 8059215-6 (Version None)
Quarter: 2012Q1

REPORT INFORMATION
  Report Type: 
  Country: None (occurrence: None)
  Receive Date: 20120112
  Receipt Date: 20111228
  Transmission Date: 20120608
  Serious: Yes (Life-Threatening, Hospitalization, Other)
  Sender: FDA-Public Use
  Company Number: 11-848

PATIENT
  Age: 38 Year
  Sex: Male

DRUGS (2)
  1. ACETAMINOPHEN [Suspect]
     Indication: HEADACHE
     Dosage: 500 MG, BID, ORAL
     Route: 048
     Dates: start: 20090101, end: 20110915
  2. IBUPROFEN [Suspect]
     Indication: HEADACHE
     Dosage: 400 MG, BID, ORAL
     Route: 048
     Dates: start: 20110801, end: 20110914

REACTIONS (3)
  - TUBULOINTERSTITIAL NEPHRITIS [None]
  - RENAL FAILURE ACUTE [None]
  - URINARY TRACT INFECTION [None]
